FAERS Safety Report 18759522 (Version 5)
Quarter: 2021Q3

REPORT INFORMATION
  Report Type: Report from Study
  Country: CA (occurrence: CA)
  Receive Date: 20210119
  Receipt Date: 20210825
  Transmission Date: 20211014
  Serious: Yes (Other)
  Sender: FDA-Public Use
  Company Number: CA-TAKEDA-CA202029322

PATIENT
  Age: 67 Year
  Sex: Female

DRUGS (23)
  1. DEXILANT [Concomitant]
     Active Substance: DEXLANSOPRAZOLE
     Dosage: 30 MILLIGRAM
     Route: 065
  2. BERINERT [Concomitant]
     Active Substance: HUMAN C1-ESTERASE INHIBITOR
     Dosage: 6 MILLILITER, 4/WEEK
     Route: 058
     Dates: start: 20180111
  3. CYCLOMEN [Concomitant]
     Active Substance: DANAZOL
     Dosage: 5 MILLIGRAM, 2 TO 3 CAPSULES A DAY
     Route: 065
     Dates: start: 19900101, end: 20171221
  4. CYCLOBENZAPRINE. [Concomitant]
     Active Substance: CYCLOBENZAPRINE
     Dosage: 10 MILLIGRAM
     Route: 065
  5. PMS DOCUSATE SODIUM [Concomitant]
     Dosage: 100 MILLIGRAM
     Route: 065
  6. ICATIBANT [Suspect]
     Active Substance: ICATIBANT ACETATE
     Dosage: 30 MILLIGRAM, PRN
     Route: 065
     Dates: start: 20170929
  7. CYCLOMEN [Concomitant]
     Active Substance: DANAZOL
     Indication: PRODUCT USED FOR UNKNOWN INDICATION
     Dosage: 5 MILLIGRAM, 2 TO 3 CAPSULES A DAY
     Route: 065
     Dates: start: 19900101
  8. RIMSO?50 [Concomitant]
     Active Substance: DIMETHYL SULFOXIDE
     Dosage: 500 MILLIGRAM PER GRAM
     Route: 065
  9. APO HYDRO [Concomitant]
     Active Substance: HYDROCHLOROTHIAZIDE
     Dosage: 25 MILLIGRAM
     Route: 065
  10. APO DULOXETINE [Concomitant]
     Active Substance: DULOXETINE
     Dosage: 60 MILLIGRAM
     Route: 065
  11. ICATIBANT [Suspect]
     Active Substance: ICATIBANT ACETATE
     Dosage: 30 MILLIGRAM, PRN
     Route: 065
     Dates: start: 20170929
  12. PMS CELECOXIB [Concomitant]
     Dosage: 200 MILLIGRAM
     Route: 065
  13. JAMP SENNA S [Concomitant]
     Dosage: 8.6 MILLIGRAM
     Route: 065
  14. ELMIRON [Concomitant]
     Active Substance: PENTOSAN POLYSULFATE SODIUM
     Dosage: 100 MILLIGRAM
     Route: 065
  15. ICATIBANT [Suspect]
     Active Substance: ICATIBANT ACETATE
     Indication: HEREDITARY ANGIOEDEMA
     Dosage: 30 MILLIGRAM, PRN
     Route: 065
     Dates: start: 20170929
  16. ICATIBANT [Suspect]
     Active Substance: ICATIBANT ACETATE
     Dosage: UNK MICROGRAM PER MILLIGRAM
     Route: 065
     Dates: start: 20170929
  17. BERINERT [Concomitant]
     Active Substance: HUMAN C1-ESTERASE INHIBITOR
     Indication: PRODUCT USED FOR UNKNOWN INDICATION
     Dosage: 6 MILLILITER, 2/WEEK
     Route: 058
     Dates: start: 20170901, end: 20180108
  18. CALTRATE [Concomitant]
     Active Substance: CALCIUM CARBONATE
     Dosage: UNK
     Route: 065
  19. ICATIBANT [Suspect]
     Active Substance: ICATIBANT ACETATE
     Dosage: 30 MILLIGRAM, PRN
     Route: 065
     Dates: start: 20170929
  20. ICATIBANT [Suspect]
     Active Substance: ICATIBANT ACETATE
     Indication: HEREDITARY ANGIOEDEMA
     Dosage: 30 MILLIGRAM, PRN
     Route: 065
     Dates: start: 20170929
  21. ICATIBANT [Suspect]
     Active Substance: ICATIBANT ACETATE
     Dosage: UNK MICROGRAM PER MILLIGRAM
     Route: 065
     Dates: start: 20170929
  22. ICATIBANT [Suspect]
     Active Substance: ICATIBANT ACETATE
     Dosage: 30 MILLIGRAM, PRN
     Route: 065
     Dates: start: 20170929
  23. SANDOZ AMLODIPINE [AMLODIPINE BESILATE] [Concomitant]
     Active Substance: AMLODIPINE BESYLATE
     Dosage: 5 MILLIGRAM, QD
     Route: 065

REACTIONS (10)
  - Rash [Recovered/Resolved]
  - Swelling [Unknown]
  - Musculoskeletal chest pain [Recovered/Resolved]
  - Cough [Recovered/Resolved]
  - Hereditary angioedema [Unknown]
  - Stress [Unknown]
  - Tendonitis [Unknown]
  - Back pain [Unknown]
  - Pain in extremity [Unknown]
  - Breast cancer [Not Recovered/Not Resolved]

NARRATIVE: CASE EVENT DATE: 20201219
